FAERS Safety Report 4786162-5 (Version None)
Quarter: 2005Q3

REPORT INFORMATION
  Report Type: 
  Country: None (occurrence: None)
  Receive Date: 20050930
  Receipt Date: 20050916
  Transmission Date: 20060218
  Serious: Yes (Hospitalization)
  Sender: FDA-Public Use
  Company Number: 217876

PATIENT
  Sex: Female
  Weight: 72 kg

DRUGS (3)
  1. AVASTIN [Suspect]
     Indication: OVARIAN CANCER
     Dosage: 10 MG/KG. DAYS 1 + 15, INTRAVENOUS
     Route: 042
     Dates: start: 20050211, end: 20050519
  2. CYCLOPHOSPHAMIDE [Suspect]
     Indication: OVARIAN CANCER
     Dosage: 50 MG QD ORAL
     Route: 048
     Dates: start: 20050211, end: 20050601
  3. CAELYX (DOXORUBICIN, DOXORUBICIN HYDROCHLORIDE) [Concomitant]

REACTIONS (6)
  - ASCITES [None]
  - BLOOD PRESSURE DECREASED [None]
  - DISEASE PROGRESSION [None]
  - GASTROINTESTINAL PERFORATION [None]
  - OXYGEN SATURATION DECREASED [None]
  - URINE OUTPUT INCREASED [None]
